FAERS Safety Report 19454810 (Version 1)
Quarter: 2021Q2

REPORT INFORMATION
  Report Type: Report from Study
  Country: US (occurrence: US)
  Receive Date: 20210623
  Receipt Date: 20210623
  Transmission Date: 20210717
  Serious: Yes (Other)
  Sender: FDA-Public Use
  Company Number: US-GLAXOSMITHKLINE-US2021AMR045411

PATIENT
  Sex: Female

DRUGS (1)
  1. BELANTAMAB MAFODOTIN. [Suspect]
     Active Substance: BELANTAMAB MAFODOTIN
     Indication: PRODUCT USED FOR UNKNOWN INDICATION
     Dosage: UNK
     Dates: start: 20210107

REACTIONS (6)
  - Encephalitis [Recovering/Resolving]
  - Keratopathy [Unknown]
  - Confusional state [Unknown]
  - Central nervous system lesion [Unknown]
  - Vasculitis [Unknown]
  - Mental status changes [Unknown]
